FAERS Safety Report 18690145 (Version 1)
Quarter: 2020Q4

REPORT INFORMATION
  Report Type: Spontaneous
  Country: IR (occurrence: IR)
  Receive Date: 20201231
  Receipt Date: 20201231
  Transmission Date: 20210114
  Serious: Yes (Other)
  Sender: FDA-Public Use
  Company Number: IR-SCIEGEN-2020SCILIT00504

PATIENT
  Age: 20 Year
  Sex: Female

DRUGS (6)
  1. QUETIAPINE. [Suspect]
     Active Substance: QUETIAPINE
     Indication: MAJOR DEPRESSION
     Route: 065
  2. SERTRALINE HYDROCHLORIDE TABLETS [Suspect]
     Active Substance: SERTRALINE HYDROCHLORIDE
     Indication: BODY DYSMORPHIC DISORDER
  3. QUETIAPINE. [Suspect]
     Active Substance: QUETIAPINE
     Indication: BODY DYSMORPHIC DISORDER
     Route: 065
  4. SERTRALINE HYDROCHLORIDE TABLETS [Suspect]
     Active Substance: SERTRALINE HYDROCHLORIDE
     Indication: MAJOR DEPRESSION
     Route: 065
  5. DEXAMETHASONE. [Interacting]
     Active Substance: DEXAMETHASONE
     Indication: FACIAL PARALYSIS
     Route: 065
  6. ACICLOVIR [Interacting]
     Active Substance: ACYCLOVIR
     Indication: FACIAL PARALYSIS
     Route: 065

REACTIONS (2)
  - Facial paralysis [Recovered/Resolved]
  - Drug interaction [Recovered/Resolved]
